FAERS Safety Report 7958214-X (Version None)
Quarter: 2011Q4

REPORT INFORMATION
  Report Type: 
  Country: None (occurrence: None)
  Receive Date: 20111205
  Receipt Date: 20111129
  Transmission Date: 20120403
  Serious: Yes (Hospitalization)
  Sender: FDA-Public Use
  Company Number: AU-B.I. PHARMACEUTICALS,INC./RIDGEFIELD-2011-AU-02243AU

PATIENT
  Sex: Male
  Weight: 86 kg

DRUGS (3)
  1. JANUMET [Concomitant]
     Dosage: 50MG/1000MG
  2. PRADAXA [Suspect]
     Indication: ATRIAL FIBRILLATION
     Dosage: 300 MG
     Dates: start: 20111018, end: 20111018
  3. LIPITOR [Concomitant]

REACTIONS (2)
  - URTICARIA [None]
  - BRONCHOSPASM [None]
